FAERS Safety Report 12380892 (Version 1)
Quarter: 2016Q2

REPORT INFORMATION
  Report Type: Spontaneous
  Country: US (occurrence: None)
  Receive Date: 20160517
  Receipt Date: 20160517
  Transmission Date: 20160815
  Serious: Yes (Other)
  Sender: FDA-Public Use
  Company Number: None

PATIENT
  Age: 29 Year
  Sex: Male
  Weight: 81.65 kg

DRUGS (4)
  1. OXYCODONE ACETAMINOPHEN [Suspect]
     Active Substance: ACETAMINOPHEN\OXYCODONE HYDROCHLORIDE
     Indication: PROCEDURAL PAIN
     Route: 048
     Dates: start: 20160512
  2. CLONAZEPAM. [Concomitant]
     Active Substance: CLONAZEPAM
  3. VITAMIN C GUMMIES [Concomitant]
  4. CIALIS [Concomitant]
     Active Substance: TADALAFIL

REACTIONS (1)
  - Drug ineffective [None]

NARRATIVE: CASE EVENT DATE: 20160512
